FAERS Safety Report 20229262 (Version 1)
Quarter: 2021Q4

REPORT INFORMATION
  Report Type: Spontaneous
  Country: CA (occurrence: CA)
  Receive Date: 20211225
  Receipt Date: 20211225
  Transmission Date: 20220303
  Serious: Yes (Death)
  Sender: FDA-Public Use
  Company Number: CA-TEVA-2021-CA-1991626

PATIENT
  Age: 61 Year
  Sex: Female
  Weight: 85 kg

DRUGS (7)
  1. DIPHENHYDRAMINE [Suspect]
     Active Substance: DIPHENHYDRAMINE
  2. ZOPICLONE [Suspect]
     Active Substance: ZOPICLONE
     Route: 048
  3. ADALAT XL - SRT [Concomitant]
  4. HYDROCHLOROTHIAZIDE [Concomitant]
     Active Substance: HYDROCHLOROTHIAZIDE
  5. NIFEDIPINE [Concomitant]
     Active Substance: NIFEDIPINE
  6. NITROLINGUAL PUMPSPRAY [Concomitant]
     Active Substance: NITROGLYCERIN
  7. QUINAPRIL [Concomitant]
     Active Substance: QUINAPRIL

REACTIONS (1)
  - Overdose [Fatal]
